FAERS Safety Report 10449532 (Version 1)
Quarter: 2014Q3

REPORT INFORMATION
  Report Type: Spontaneous
  Country: PL (occurrence: None)
  Receive Date: 20140910
  Receipt Date: 20140910
  Transmission Date: 20150326
  Serious: Yes (Other)
  Sender: FDA-Public Use
  Company Number: PL-LHC-2014077

PATIENT
  Age: 65 Year
  Sex: Male

DRUGS (1)
  1. CARBON DIOXIDE. [Suspect]
     Active Substance: CARBON DIOXIDE
     Indication: SURGERY
     Dosage: INSUFFLATION

REACTIONS (6)
  - Pericardial disease [None]
  - Hypotension [None]
  - Dextrocardia [None]
  - Electrocardiogram abnormal [None]
  - Iatrogenic injury [None]
  - Renal impairment [None]
